FAERS Safety Report 18120977 (Version 3)
Quarter: 2020Q3

REPORT INFORMATION
  Report Type: Spontaneous
  Country: US (occurrence: US)
  Receive Date: 20200806
  Receipt Date: 20200825
  Transmission Date: 20201103
  Serious: Yes (Hospitalization)
  Sender: FDA-Public Use
  Company Number: US-ACTELION-A-US2020-207846

PATIENT
  Age: 16 Year
  Sex: Female

DRUGS (4)
  1. TADALAFIL. [Concomitant]
     Active Substance: TADALAFIL
     Dosage: 40 MG, QD
  2. OPSUMIT [Suspect]
     Active Substance: MACITENTAN
     Indication: PULMONARY ARTERIAL HYPERTENSION
     Dosage: 10 MG, QD
     Route: 048
     Dates: start: 20191030
  3. REMODULIN [Concomitant]
     Active Substance: TREPROSTINIL
     Dosage: UNK
     Route: 042
  4. WARFARIN [Concomitant]
     Active Substance: WARFARIN
     Dosage: 7.5 MG, QD

REACTIONS (8)
  - Nausea [Recovered/Resolved]
  - Chills [Recovered/Resolved]
  - Pyrexia [Recovered/Resolved]
  - Acinetobacter sepsis [Recovered/Resolved]
  - Headache [Recovered/Resolved]
  - Vomiting [Recovered/Resolved]
  - Vascular device infection [Recovered/Resolved]
  - Catheter management [Recovered/Resolved]

NARRATIVE: CASE EVENT DATE: 202007
